FAERS Safety Report 10503576 (Version 1)
Quarter: 2014Q4

REPORT INFORMATION
  Report Type: Report from Study
  Country: US (occurrence: US)
  Receive Date: 20141008
  Receipt Date: 20141008
  Transmission Date: 20150528
  Serious: Yes (Other)
  Sender: FDA-Public Use
  Company Number: PHEH2014US019450

PATIENT
  Age: 49 Year
  Sex: Male
  Weight: 79.82 kg

DRUGS (1)
  1. GILENYA [Suspect]
     Active Substance: FINGOLIMOD HYDROCHLORIDE
     Indication: MULTIPLE SCLEROSIS
     Dosage: 0.5 MG, QD
     Route: 048

REACTIONS (23)
  - Speech disorder [Not Recovered/Not Resolved]
  - Arthralgia [Recovering/Resolving]
  - Paralysis [Unknown]
  - Injury [Unknown]
  - Chest pain [Unknown]
  - Tobacco abuse [Not Recovered/Not Resolved]
  - HIV infection [Not Recovered/Not Resolved]
  - Hypoaesthesia [Unknown]
  - Sinus bradycardia [Unknown]
  - Pancreatitis [Unknown]
  - Major depression [Recovering/Resolving]
  - Cerebrovascular disorder [Unknown]
  - Mastoiditis [Recovering/Resolving]
  - Hypercholesterolaemia [Recovering/Resolving]
  - Memory impairment [Unknown]
  - Alcohol abuse [Recovering/Resolving]
  - Multiple sclerosis relapse [Unknown]
  - Paraesthesia [Unknown]
  - Epicondylitis [Recovering/Resolving]
  - Type 1 diabetes mellitus [Recovering/Resolving]
  - Nerve compression [Unknown]
  - Neck pain [Recovered/Resolved]
  - Neuralgia [Recovering/Resolving]

NARRATIVE: CASE EVENT DATE: 201404
